FAERS Safety Report 26169154 (Version 1)
Quarter: 2025Q4

REPORT INFORMATION
  Report Type: Spontaneous
  Country: AU (occurrence: AU)
  Receive Date: 20251217
  Receipt Date: 20251217
  Transmission Date: 20260117
  Serious: Yes (Hospitalization)
  Sender: MYLAN
  Company Number: AU-MYLANLABS-2025M1107254

PATIENT
  Age: 86 Year
  Sex: Male

DRUGS (44)
  1. RIFAMPIN [Suspect]
     Active Substance: RIFAMPIN
     Indication: Bacillus Calmette-Guerin infection
     Dosage: UNK
  2. RIFAMPIN [Suspect]
     Active Substance: RIFAMPIN
     Indication: Mycobacterium tuberculosis complex test positive
     Dosage: UNK
     Route: 065
  3. RIFAMPIN [Suspect]
     Active Substance: RIFAMPIN
     Dosage: UNK
     Route: 065
  4. RIFAMPIN [Suspect]
     Active Substance: RIFAMPIN
     Dosage: UNK
  5. ISONIAZID [Suspect]
     Active Substance: ISONIAZID
     Indication: Bacillus Calmette-Guerin infection
     Dosage: UNK
  6. ISONIAZID [Suspect]
     Active Substance: ISONIAZID
     Indication: Mycobacterium tuberculosis complex test positive
     Dosage: UNK
     Route: 065
  7. ISONIAZID [Suspect]
     Active Substance: ISONIAZID
     Dosage: UNK
     Route: 065
  8. ISONIAZID [Suspect]
     Active Substance: ISONIAZID
     Dosage: UNK
  9. PYRIDOXINE [Suspect]
     Active Substance: PYRIDOXINE
     Indication: Bacillus Calmette-Guerin infection
     Dosage: UNK
  10. PYRIDOXINE [Suspect]
     Active Substance: PYRIDOXINE
     Indication: Mycobacterium tuberculosis complex test positive
     Dosage: UNK
     Route: 065
  11. PYRIDOXINE [Suspect]
     Active Substance: PYRIDOXINE
     Dosage: UNK
     Route: 065
  12. PYRIDOXINE [Suspect]
     Active Substance: PYRIDOXINE
     Dosage: UNK
  13. ETHAMBUTOL [Suspect]
     Active Substance: ETHAMBUTOL HYDROCHLORIDE
     Indication: Bacillus Calmette-Guerin infection
     Dosage: UNK
  14. ETHAMBUTOL [Suspect]
     Active Substance: ETHAMBUTOL HYDROCHLORIDE
     Indication: Mycobacterium tuberculosis complex test positive
     Dosage: UNK
     Route: 065
  15. ETHAMBUTOL [Suspect]
     Active Substance: ETHAMBUTOL HYDROCHLORIDE
     Dosage: UNK
     Route: 065
  16. ETHAMBUTOL [Suspect]
     Active Substance: ETHAMBUTOL HYDROCHLORIDE
     Dosage: UNK
  17. MOXIFLOXACIN [Suspect]
     Active Substance: MOXIFLOXACIN
     Indication: Bacillus Calmette-Guerin infection
     Dosage: UNK
  18. MOXIFLOXACIN [Suspect]
     Active Substance: MOXIFLOXACIN
     Indication: Mycobacterium tuberculosis complex test positive
     Dosage: UNK
     Route: 065
  19. MOXIFLOXACIN [Suspect]
     Active Substance: MOXIFLOXACIN
     Dosage: UNK
     Route: 065
  20. MOXIFLOXACIN [Suspect]
     Active Substance: MOXIFLOXACIN
     Dosage: UNK
  21. CHLORAMBUCIL [Concomitant]
     Active Substance: CHLORAMBUCIL
     Indication: Bladder transitional cell carcinoma
     Dosage: UNK
  22. CHLORAMBUCIL [Concomitant]
     Active Substance: CHLORAMBUCIL
     Dosage: UNK
     Route: 065
  23. CHLORAMBUCIL [Concomitant]
     Active Substance: CHLORAMBUCIL
     Dosage: UNK
     Route: 065
  24. CHLORAMBUCIL [Concomitant]
     Active Substance: CHLORAMBUCIL
     Dosage: UNK
  25. BCG [Concomitant]
     Indication: Bladder transitional cell carcinoma
     Dosage: UNK
  26. BCG [Concomitant]
     Dosage: UNK
     Route: 043
  27. BCG [Concomitant]
     Dosage: UNK
     Route: 043
  28. BCG [Concomitant]
     Dosage: UNK
  29. PEMBROLIZUMAB [Concomitant]
     Active Substance: PEMBROLIZUMAB
     Indication: Bladder transitional cell carcinoma
     Dosage: 200 MILLIGRAM, Q3W, CYCLIC
  30. PEMBROLIZUMAB [Concomitant]
     Active Substance: PEMBROLIZUMAB
     Dosage: 200 MILLIGRAM, Q3W, CYCLIC
     Route: 065
  31. PEMBROLIZUMAB [Concomitant]
     Active Substance: PEMBROLIZUMAB
     Dosage: 200 MILLIGRAM, Q3W, CYCLIC
     Route: 065
  32. PEMBROLIZUMAB [Concomitant]
     Active Substance: PEMBROLIZUMAB
     Dosage: 200 MILLIGRAM, Q3W, CYCLIC
  33. VINBLASTINE [Concomitant]
     Active Substance: VINBLASTINE
     Indication: Bladder transitional cell carcinoma
     Dosage: UNK
  34. VINBLASTINE [Concomitant]
     Active Substance: VINBLASTINE
     Dosage: UNK
     Route: 065
  35. VINBLASTINE [Concomitant]
     Active Substance: VINBLASTINE
     Dosage: UNK
     Route: 065
  36. VINBLASTINE [Concomitant]
     Active Substance: VINBLASTINE
     Dosage: UNK
  37. PROCARBAZINE [Concomitant]
     Active Substance: PROCARBAZINE
     Indication: Bladder transitional cell carcinoma
     Dosage: UNK
  38. PROCARBAZINE [Concomitant]
     Active Substance: PROCARBAZINE
     Dosage: UNK
     Route: 065
  39. PROCARBAZINE [Concomitant]
     Active Substance: PROCARBAZINE
     Dosage: UNK
     Route: 065
  40. PROCARBAZINE [Concomitant]
     Active Substance: PROCARBAZINE
     Dosage: UNK
  41. PREDNISOLONE [Concomitant]
     Active Substance: PREDNISOLONE
     Indication: Bladder transitional cell carcinoma
     Dosage: UNK
  42. PREDNISOLONE [Concomitant]
     Active Substance: PREDNISOLONE
     Dosage: UNK
     Route: 065
  43. PREDNISOLONE [Concomitant]
     Active Substance: PREDNISOLONE
     Dosage: UNK
     Route: 065
  44. PREDNISOLONE [Concomitant]
     Active Substance: PREDNISOLONE
     Dosage: UNK

REACTIONS (1)
  - Drug ineffective [Unknown]
